FAERS Safety Report 22707036 (Version 6)
Quarter: 2023Q4

REPORT INFORMATION
  Report Type: Spontaneous
  Country: US (occurrence: US)
  Receive Date: 20230714
  Receipt Date: 20231025
  Transmission Date: 20240110
  Serious: No
  Sender: FDA-Public Use
  Company Number: US-PFIZER INC-PV202300121560

PATIENT
  Age: 61 Year
  Sex: Female

DRUGS (2)
  1. IBRANCE [Suspect]
     Active Substance: PALBOCICLIB
     Dosage: 125 MG
     Dates: end: 20230710
  2. IBRANCE [Suspect]
     Active Substance: PALBOCICLIB
     Dosage: UNK
     Dates: start: 2023, end: 202308

REACTIONS (9)
  - Nausea [Unknown]
  - White blood cell count decreased [Unknown]
  - Pain [Unknown]
  - Arthralgia [Not Recovered/Not Resolved]
  - Neutrophil count decreased [Recovering/Resolving]
  - Fatigue [Unknown]
  - Laboratory test abnormal [Unknown]
  - Myalgia [Unknown]
  - Hot flush [Unknown]

NARRATIVE: CASE EVENT DATE: 20230710
